FAERS Safety Report 18388433 (Version 5)
Quarter: 2021Q1

REPORT INFORMATION
  Report Type: Spontaneous
  Country: US (occurrence: US)
  Receive Date: 20201015
  Receipt Date: 20210211
  Transmission Date: 20210419
  Serious: Yes (Other)
  Sender: FDA-Public Use
  Company Number: US-GILEAD-2020-0498264

PATIENT
  Age: 28 Year
  Sex: Male

DRUGS (1)
  1. TRUVADA [Suspect]
     Active Substance: EMTRICITABINE\TENOFOVIR DISOPROXIL FUMARATE
     Indication: PROPHYLAXIS AGAINST HIV INFECTION
     Dosage: UNK
     Route: 048
     Dates: start: 2016, end: 201910

REACTIONS (8)
  - Blood creatinine increased [Not Recovered/Not Resolved]
  - Osteonecrosis [Unknown]
  - Osteopenia [Not Recovered/Not Resolved]
  - Chronic kidney disease [Unknown]
  - Fracture [Unknown]
  - Bone density decreased [Unknown]
  - Bone loss [Unknown]
  - Renal failure [Unknown]

NARRATIVE: CASE EVENT DATE: 201806
